FAERS Safety Report 5673747-7 (Version None)
Quarter: 2008Q1

REPORT INFORMATION
  Report Type: 
  Country: None (occurrence: None)
  Receive Date: 20080319
  Receipt Date: 20080307
  Transmission Date: 20080703
  Serious: Yes (Hospitalization, Other)
  Sender: FDA-Public Use
  Company Number: US-PFIZER INC-2008003690

PATIENT
  Sex: Female
  Weight: 81.6 kg

DRUGS (14)
  1. CHANTIX [Suspect]
     Indication: SMOKING CESSATION THERAPY
     Route: 048
     Dates: start: 20080101, end: 20080101
  2. ANTICHOLINERGIC AGENTS [Suspect]
  3. SPIRONOLACTONE [Concomitant]
     Route: 048
  4. ACIPHEX [Concomitant]
     Route: 048
  5. LEVOTHYROXINE SODIUM [Concomitant]
     Route: 048
  6. ALL OTHER THERAPEUTIC PRODUCTS [Concomitant]
  7. POTASSIUM CHLORIDE [Concomitant]
     Route: 048
  8. BUSPIRONE HYDROCHLORIDE [Concomitant]
  9. AMITRIPTYLINE HCL [Concomitant]
  10. LAXATIVES [Concomitant]
  11. LACTULOSE [Concomitant]
  12. PHOSPHO-SODA [Concomitant]
  13. AMBIEN [Concomitant]
  14. POLYETHYLENE GLYCOL [Concomitant]

REACTIONS (13)
  - ANXIETY [None]
  - BLOOD CALCIUM DECREASED [None]
  - BLOOD ELECTROLYTES DECREASED [None]
  - BLOOD MAGNESIUM DECREASED [None]
  - BLOOD SODIUM DECREASED [None]
  - COLONIC PSEUDO-OBSTRUCTION [None]
  - CONSTIPATION [None]
  - FATIGUE [None]
  - INFECTION [None]
  - INFLUENZA LIKE ILLNESS [None]
  - NAUSEA [None]
  - PAIN [None]
  - VOMITING [None]
